FAERS Safety Report 5740567-4 (Version None)
Quarter: 2008Q2

REPORT INFORMATION
  Report Type: 
  Country: None (occurrence: None)
  Receive Date: 20080516
  Receipt Date: 20080509
  Transmission Date: 20081010
  Serious: No
  Sender: FDA-Public Use
  Company Number: US-ASTRAZENECA-2008UW09634

PATIENT
  Age: 56 Year
  Sex: Male

DRUGS (1)
  1. SEROQUEL XR [Suspect]
     Route: 048
     Dates: start: 20070101

REACTIONS (2)
  - BLOOD TRIGLYCERIDES INCREASED [None]
  - HAEMOGLOBIN INCREASED [None]
